FAERS Safety Report 21052358 (Version 1)
Quarter: 2022Q3

REPORT INFORMATION
  Report Type: Spontaneous
  Country: US (occurrence: US)
  Receive Date: 20220707
  Receipt Date: 20220707
  Transmission Date: 20221027
  Serious: No
  Sender: FDA-Public Use
  Company Number: US-PERRIGO-22US006497

PATIENT
  Sex: Female
  Weight: 104.31 kg

DRUGS (9)
  1. PREVACID 24 HR [Suspect]
     Active Substance: LANSOPRAZOLE
     Indication: Gastrooesophageal reflux disease
     Dosage: 15 MG, QD
     Route: 048
     Dates: start: 2019, end: 2021
  2. PREVACID 24 HR [Suspect]
     Active Substance: LANSOPRAZOLE
     Dosage: 15 MG, BID
     Route: 048
     Dates: start: 2021
  3. PRAZOSIN [Concomitant]
     Active Substance: PRAZOSIN
     Indication: Hypertension
     Dosage: UNK
     Route: 048
     Dates: start: 2014
  4. ZETIA [Concomitant]
     Active Substance: EZETIMIBE
     Indication: Hyperlipidaemia
     Dosage: UNK
     Route: 048
  5. ZOLOFT [Concomitant]
     Active Substance: SERTRALINE HYDROCHLORIDE
     Indication: Anxiety
     Dosage: UNK
     Route: 048
     Dates: start: 201407
  6. ATORVASTATIN [Concomitant]
     Active Substance: ATORVASTATIN
     Indication: Hyperlipidaemia
     Dosage: UNK
     Route: 048
     Dates: start: 202105
  7. VITAMIN B12 [Concomitant]
     Active Substance: CYANOCOBALAMIN
     Indication: Supplementation therapy
     Dosage: UNK
     Route: 048
  8. VITAMIN D3 [Concomitant]
     Active Substance: CHOLECALCIFEROL
     Indication: Supplementation therapy
     Dosage: UNK
     Route: 048
  9. COENZYME Q10 [Concomitant]
     Active Substance: DIETARY SUPPLEMENT\UBIDECARENONE
     Indication: Supplementation therapy
     Dosage: UNK
     Route: 048

REACTIONS (2)
  - Incorrect product administration duration [Unknown]
  - Inappropriate schedule of product administration [Unknown]

NARRATIVE: CASE EVENT DATE: 20190101
